FAERS Safety Report 5872547-2 (Version None)
Quarter: 2008Q3

REPORT INFORMATION
  Report Type: 
  Country: None (occurrence: None)
  Receive Date: 20080905
  Receipt Date: 20080827
  Transmission Date: 20090109
  Serious: Yes (Other)
  Sender: FDA-Public Use
  Company Number: SE-CELGENEUS-150-C5013-08081367

PATIENT
  Sex: Female
  Weight: 84.2 kg

DRUGS (3)
  1. REVLIMID [Suspect]
     Indication: MYELODYSPLASTIC SYNDROME
     Route: 048
     Dates: start: 20080825, end: 20080827
  2. REVLIMID [Suspect]
     Route: 048
     Dates: start: 20080828
  3. REVLIMID [Suspect]
     Route: 048
     Dates: start: 20060310

REACTIONS (1)
  - URINE HUMAN CHORIONIC GONADOTROPIN ABNORMAL [None]
